FAERS Safety Report 20519817 (Version 2)
Quarter: 2022Q2

REPORT INFORMATION
  Report Type: Spontaneous
  Country: US (occurrence: US)
  Receive Date: 20220225
  Receipt Date: 20220401
  Transmission Date: 20220721
  Serious: Yes (Death, Other)
  Sender: FDA-Public Use
  Company Number: US-PFIZER INC-202200291766

PATIENT
  Age: 76 Year
  Sex: Male
  Weight: 53.07 kg

DRUGS (12)
  1. RAPAMUNE [Suspect]
     Active Substance: SIROLIMUS
     Indication: Heart transplant
     Dosage: 0.5 MG, 1X/DAY (0.5MG TABLET IN THE MORNING)
     Dates: start: 200508, end: 202201
  2. NEORAL [Concomitant]
     Active Substance: CYCLOSPORINE
     Indication: Heart transplant
     Dosage: 50 MG, 2X/DAY (25MG 2 IN THE MORNING AND 2 IN THE EVENING)
  3. PLAVIX [Concomitant]
     Active Substance: CLOPIDOGREL BISULFATE
     Indication: Cerebrovascular accident
     Dosage: 75 MG, DAILY (75MG ONE IN THE MORNING DAILY)
  4. PLAVIX [Concomitant]
     Active Substance: CLOPIDOGREL BISULFATE
     Indication: Myocardial infarction
  5. DONEPEZIL [Concomitant]
     Active Substance: DONEPEZIL
     Indication: Memory impairment
     Dosage: 10 MG, 1X/DAY (10MG ONCE AT NIGHT)
  6. MEMANTINE [Concomitant]
     Active Substance: MEMANTINE
     Indication: Dementia
     Dosage: 10 MG, 2X/DAY (10MG 1 IN THE MORNING AND 1 AT NIGHT)
  7. SIMVASTATIN [Concomitant]
     Active Substance: SIMVASTATIN
     Indication: Blood cholesterol
     Dosage: 20 MG, 1X/DAY (20MG 1 AT NIGHT)
  8. ASPIRIN [Concomitant]
     Active Substance: ASPIRIN
     Indication: Anticoagulant therapy
     Dosage: 81 MG, 1X/DAY (81MG ONE TIME A DAY)
  9. IRON [Concomitant]
     Active Substance: IRON
     Indication: Anaemia
     Dosage: 65 MG, 2X/DAY(65MG 1 IN MORNING 1 AT NIGHT)
  10. MAGNESIUM [Concomitant]
     Active Substance: MAGNESIUM
     Dosage: 400 MG, 1X/DAY (400MG ONE IN THE MORNING)
  11. CALCIUM [Concomitant]
     Active Substance: CALCIUM
     Indication: Supplementation therapy
     Dosage: 600 MG, 1X/DAY (600MG 1 IN THE MORNING 1 AT NIGHT )
  12. CELLCEPT [Concomitant]
     Active Substance: MYCOPHENOLATE MOFETIL
     Indication: Heart transplant
     Dosage: 2000 MG, DAILY (500MG TABLET 2 IN THE MORNING AND 2 AT NIGHT)
     Dates: start: 200508

REACTIONS (4)
  - Aortic aneurysm rupture [Fatal]
  - Aortic aneurysm [Unknown]
  - Aortic aneurysm [Unknown]
  - COVID-19 [Unknown]

NARRATIVE: CASE EVENT DATE: 20190101
